FAERS Safety Report 12497801 (Version 2)
Quarter: 2016Q2

REPORT INFORMATION
  Report Type: Spontaneous
  Country: US (occurrence: US)
  Receive Date: 20160625
  Receipt Date: 20160629
  Transmission Date: 20160815
  Serious: Yes (Other)
  Sender: FDA-Public Use
  Company Number: US-JNJFOC-20160617371

PATIENT
  Sex: Female
  Weight: 74.84 kg

DRUGS (5)
  1. TETRACYCLINE [Concomitant]
     Active Substance: TETRACYCLINE
     Indication: SKIN DISORDER
     Route: 065
  2. WOMENS ROGAINE [Suspect]
     Active Substance: MINOXIDIL
     Indication: ALOPECIA AREATA
     Route: 061
  3. PROSCAR [Concomitant]
     Active Substance: FINASTERIDE
     Indication: SKIN DISORDER
     Route: 065
  4. WOMENS ROGAINE [Suspect]
     Active Substance: MINOXIDIL
     Indication: ALOPECIA AREATA
     Route: 061
  5. BIOTIN [Concomitant]
     Active Substance: BIOTIN
     Indication: GENERAL PHYSICAL CONDITION
     Route: 065

REACTIONS (3)
  - Off label use [Unknown]
  - Breast cancer [Recovered/Resolved]
  - Product use issue [Unknown]
